APPROVED DRUG PRODUCT: DOXYCYCLINE HYCLATE
Active Ingredient: DOXYCYCLINE HYCLATE
Strength: EQ 100MG BASE
Dosage Form/Route: TABLET, DELAYED RELEASE;ORAL
Application: A090431 | Product #002
Applicant: RISING PHARMA HOLDING INC
Approved: Dec 28, 2010 | RLD: No | RS: No | Type: DISCN